FAERS Safety Report 25841451 (Version 1)
Quarter: 2025Q3

REPORT INFORMATION
  Report Type: Spontaneous
  Country: US (occurrence: US)
  Receive Date: 20250924
  Receipt Date: 20250924
  Transmission Date: 20251020
  Serious: Yes (Hospitalization, Other)
  Sender: ABBVIE
  Company Number: US-ABBVIE-6463662

PATIENT
  Sex: Female

DRUGS (1)
  1. HUMIRA [Suspect]
     Active Substance: ADALIMUMAB
     Indication: Maternal exposure timing unspecified
     Route: 064

REACTIONS (5)
  - Premature baby [Recovered/Resolved]
  - Cardiac murmur [Recovered/Resolved]
  - Cardiac murmur [Recovering/Resolving]
  - Dyspnoea [Recovered/Resolved]
  - Foetal exposure during pregnancy [Unknown]

NARRATIVE: CASE EVENT DATE: 20191201
